FAERS Safety Report 6166349-X (Version None)
Quarter: 2009Q2

REPORT INFORMATION
  Report Type: 
  Country: None (occurrence: None)
  Receive Date: 20090422
  Receipt Date: 20090422
  Transmission Date: 20091009
  Serious: Yes (Hospitalization)
  Sender: FDA-Public Use
  Company Number: None

PATIENT
  Age: 63 Year
  Sex: Male

DRUGS (1)
  1. IODAMIDE MEGLUMINE [Suspect]
     Indication: ENDOSCOPIC RETROGRADE CHOLANGIOPANCREATOGRAPHY
     Dosage: UNKNOWN-FOR ERCP
     Dates: start: 20090327, end: 20090327

REACTIONS (3)
  - ANAPHYLACTIC REACTION [None]
  - PYREXIA [None]
  - SOMNOLENCE [None]
